FAERS Safety Report 9768458 (Version 1)
Quarter: 2013Q4

REPORT INFORMATION
  Report Type: Spontaneous
  Country: US (occurrence: US)
  Receive Date: 20131217
  Receipt Date: 20131217
  Transmission Date: 20140711
  Serious: No
  Sender: FDA-Public Use
  Company Number: US-GILEAD-2013-0089850

PATIENT
  Age: 44 Year
  Sex: Male

DRUGS (2)
  1. COMPLERA [Suspect]
     Indication: PRODUCT USED FOR UNKNOWN INDICATION
     Dosage: 1 DF, QD
     Route: 065
     Dates: start: 20131201
  2. TESSALON PERLE [Concomitant]

REACTIONS (2)
  - Influenza like illness [Recovered/Resolved]
  - Headache [Recovered/Resolved]
